FAERS Safety Report 6292928-5 (Version None)
Quarter: 2009Q3

REPORT INFORMATION
  Report Type: 
  Country: None (occurrence: None)
  Receive Date: 20090729
  Receipt Date: 20090226
  Transmission Date: 20100115
  Serious: Yes (Hospitalization)
  Sender: FDA-Public Use
  Company Number: IT-GUERBET-20090014

PATIENT
  Age: 42 Year
  Sex: Female

DRUGS (1)
  1. DOTAREM:  08GD043A / GADOTERIC ACID [Suspect]
     Indication: NUCLEAR MAGNETIC RESONANCE IMAGING
     Dosage: 11, ML MILLILITER (S), 1, 1, TOTAL INTRAVENOUS NOT OTHERWISE SPECIFIED)
     Route: 042
     Dates: start: 20090205, end: 20090205

REACTIONS (8)
  - CYANOSIS [None]
  - DYSPNOEA [None]
  - EYELID OEDEMA [None]
  - LARYNGEAL OEDEMA [None]
  - NASAL CONGESTION [None]
  - PRURITUS [None]
  - STRIDOR [None]
  - URTICARIA [None]
